FAERS Safety Report 4353569-X (Version None)
Quarter: 2004Q2

REPORT INFORMATION
  Report Type: 
  Country: None (occurrence: None)
  Receive Date: 20040505
  Receipt Date: 20040316
  Transmission Date: 20050107
  Serious: Yes (Death, Life-Threatening)
  Sender: FDA-Public Use
  Company Number: FR-GLAXOSMITHKLINE-B0326788A

PATIENT
  Age: 62 Year
  Sex: Male

DRUGS (8)
  1. ZOPHREN [Suspect]
     Dosage: 1AMP SEE DOSAGE TEXT
     Route: 042
     Dates: start: 20040126, end: 20040202
  2. ARACYTINE [Suspect]
     Dosage: 100MGM2 PER DAY
     Route: 042
     Dates: start: 20040127, end: 20040201
  3. PRIMPERAN INJ [Suspect]
     Indication: VOMITING
     Route: 042
     Dates: start: 20040127, end: 20040130
  4. ZAVEDOS [Suspect]
     Dosage: 8MGM2 PER DAY
     Route: 042
     Dates: start: 20040127, end: 20040131
  5. BELUSTINE [Suspect]
     Dosage: 200MGM2 PER DAY
     Route: 048
     Dates: start: 20040127, end: 20040127
  6. TENORDATE [Concomitant]
     Indication: ESSENTIAL HYPERTENSION
     Dosage: 1UNIT PER DAY
     Route: 048
     Dates: end: 20040205
  7. ACUPAN [Concomitant]
     Route: 065
  8. LASIX [Concomitant]
     Route: 065

REACTIONS (2)
  - DEATH [None]
  - HYPERBILIRUBINAEMIA [None]
